FAERS Safety Report 19065813 (Version 1)
Quarter: 2021Q1

REPORT INFORMATION
  Report Type: Spontaneous
  Country: BR (occurrence: BR)
  Receive Date: 20210327
  Receipt Date: 20210327
  Transmission Date: 20210420
  Serious: Yes (Other)
  Sender: FDA-Public Use
  Company Number: BR-TORRENT-00005563

PATIENT
  Age: 58 Year
  Sex: Female
  Weight: 63 kg

DRUGS (3)
  1. SERTRALINE [Suspect]
     Active Substance: SERTRALINE HYDROCHLORIDE
     Indication: DEPRESSION
     Dosage: IN NIGHT FOR 30 DAYS
     Dates: start: 202101
  2. SERTRALINE 50MG [Suspect]
     Active Substance: SERTRALINE HYDROCHLORIDE
     Indication: DEPRESSION
     Dosage: IN MORNING FOR 30 DAYS
     Route: 048
     Dates: start: 202101
  3. ZARGUS [Concomitant]
     Active Substance: RISPERIDONE
     Indication: INSOMNIA
     Dosage: UNKNOWN
     Route: 048
     Dates: start: 202101

REACTIONS (5)
  - Dysphagia [Recovered/Resolved]
  - Dyspepsia [Recovered/Resolved]
  - Dyspnoea [Recovered/Resolved]
  - Haematemesis [Recovered/Resolved]
  - Blood pressure decreased [Recovered/Resolved]

NARRATIVE: CASE EVENT DATE: 2021
